FAERS Safety Report 8275159-9 (Version None)
Quarter: 2012Q2

REPORT INFORMATION
  Report Type: 
  Country: None (occurrence: None)
  Receive Date: 20120411
  Receipt Date: 20120405
  Transmission Date: 20120825
  Serious: Yes (Other)
  Sender: FDA-Public Use
  Company Number: PHHY2012KR029679

PATIENT
  Age: 25 Year
  Sex: Female

DRUGS (9)
  1. IDARUBICIN HCL [Suspect]
     Indication: ACUTE MYELOID LEUKAEMIA
     Dosage: INDUCTION THERAPY: 12 MG/M2/DAY ON DAY 1-3
  2. CYTARABINE [Suspect]
     Dosage: CONSOLIDATION THERAPY: 3 G/M2/DAY ON DAY 1, 3, 5,
  3. MITOXANTRONE [Suspect]
     Dosage: SALVAGE CHEMOTHERAPY: 10 MG/M2/DAY ON DAY 1-3
  4. CYTARABINE [Suspect]
     Indication: ACUTE MYELOID LEUKAEMIA
     Dosage: INDUCTION THERAPY: 200 MG/M2, PER DAY ON DAYS 1-7
  5. MITOXANTRONE [Suspect]
     Indication: ACUTE MYELOID LEUKAEMIA
     Dosage: INDUCTION THERAPY :12 MG/M2/DAY ON DAY 1-6
  6. CYTARABINE [Suspect]
     Dosage: INDUCTION THERAPY:3 G/M2/DAY ON DAY 1-6
  7. ETOPOSIDE [Concomitant]
     Indication: ACUTE MYELOID LEUKAEMIA
     Dosage: SALVAGE CHEMOTHERAPY: 100MG/M2/DAY ON DAY 1-4
  8. CYTARABINE [Suspect]
     Dosage: SALVAGE THERAPY: 1G/M2/DAY EVERY 12 HOUR ON DAYS 1-5, TOTAL CUMULATIVE 10G/M2
  9. IDARUBICIN HCL [Suspect]
     Dosage: CONDUCTION THERAPY: 12 MG/M2/DAY ON DAY 2, 4

REACTIONS (8)
  - CHEST PAIN [None]
  - CHEST DISCOMFORT [None]
  - PLEURAL EFFUSION [None]
  - LEUKOPENIA [None]
  - PERICARDITIS CONSTRICTIVE [None]
  - MUSCULOSKELETAL PAIN [None]
  - CARDIOMEGALY [None]
  - THROMBOCYTOPENIA [None]
